FAERS Safety Report 9937405 (Version 2)
Quarter: 2014Q2

REPORT INFORMATION
  Report Type: Spontaneous
  Country: US (occurrence: US)
  Receive Date: 20140303
  Receipt Date: 20140407
  Transmission Date: 20141212
  Serious: Yes (Hospitalization, Other)
  Sender: FDA-Public Use
  Company Number: US-AMGEN-USASP2014014004

PATIENT
  Age: 52 Year
  Sex: Female

DRUGS (9)
  1. PEGFILGRASTIM [Suspect]
     Indication: BREAST CANCER
     Dosage: 6 MG, UNK
     Route: 058
     Dates: start: 20100521
  2. BEVACIZUMAB [Suspect]
     Indication: BREAST CANCER
     Dosage: OVER 30-90 MIN ON DAY 1
     Route: 042
     Dates: start: 20100521
  3. CYCLOPHOSPHAMIDE [Suspect]
     Indication: BREAST CANCER
     Dosage: 600 MG/M2, CYCLICAL
     Route: 042
     Dates: start: 20100521
  4. DOXORUBICINE                       /00330901/ [Suspect]
     Indication: BREAST CANCER
     Dosage: 60 MG/M2, CYCLICAL
     Route: 042
     Dates: start: 20100521
  5. PACLITAXEL [Suspect]
     Indication: BREAST CANCER
     Dosage: 80 MG/M2, IV OVER 1 HR ON DAYS 1, 8 AND 15
     Route: 042
     Dates: start: 20100827
  6. PERCOCET                           /00867901/ [Concomitant]
     Indication: PRODUCT USED FOR UNKNOWN INDICATION
     Dosage: UNK
  7. CELEXA                             /00582602/ [Concomitant]
     Dosage: UNK
  8. PROTONIX [Concomitant]
     Dosage: UNK
  9. SYNTHROID [Concomitant]
     Dosage: UNK

REACTIONS (8)
  - Syncope [Recovered/Resolved]
  - Angina pectoris [Recovered/Resolved]
  - Headache [Recovered/Resolved]
  - Pericardial effusion [Unknown]
  - Vomiting [Recovered/Resolved]
  - Neutrophil count decreased [Recovered/Resolved]
  - Cognitive disorder [Recovered/Resolved]
  - Fatigue [Recovered/Resolved]
